FAERS Safety Report 16326903 (Version 2)
Quarter: 2019Q2

REPORT INFORMATION
  Report Type: Report from Study
  Country: US (occurrence: US)
  Receive Date: 20190517
  Receipt Date: 20190610
  Transmission Date: 20190711
  Serious: Yes (Death, Hospitalization, Other)
  Sender: FDA-Public Use
  Company Number: US-GILEAD-2019-0408423

PATIENT
  Age: 64 Year
  Sex: Female

DRUGS (2)
  1. SILDENAFIL. [Concomitant]
     Active Substance: SILDENAFIL
  2. AMBRISENTAN [Suspect]
     Active Substance: AMBRISENTAN
     Indication: PULMONARY HYPERTENSION
     Dosage: 10 MG, QD
     Route: 065
     Dates: start: 20160805

REACTIONS (4)
  - Dialysis [Not Recovered/Not Resolved]
  - Pneumonia [Not Recovered/Not Resolved]
  - Cellulitis [Not Recovered/Not Resolved]
  - Death [Fatal]
